FAERS Safety Report 10286001 (Version 1)
Quarter: 2014Q3

REPORT INFORMATION
  Report Type: Spontaneous
  Country: US (occurrence: None)
  Receive Date: 20140703
  Receipt Date: 20140703
  Transmission Date: 20150326
  Serious: No
  Sender: FDA-Public Use
  Company Number: None

PATIENT
  Age: 25 Year
  Sex: Male
  Weight: 81.65 kg

DRUGS (1)
  1. ADDERALL [Suspect]
     Active Substance: AMPHETAMINE ASPARTATE\AMPHETAMINE SULFATE\DEXTROAMPHETAMINE SACCHARATE\DEXTROAMPHETAMINE SULFATE
     Indication: ATTENTION DEFICIT/HYPERACTIVITY DISORDER
     Dosage: 1 PILL ONCE DAILY TAKEN BY MOUTH
     Route: 048
     Dates: start: 20140616, end: 20140701

REACTIONS (7)
  - Anxiety [None]
  - Attention deficit/hyperactivity disorder [None]
  - Tachycardia [None]
  - Unevaluable event [None]
  - Disturbance in social behaviour [None]
  - Condition aggravated [None]
  - Chest pain [None]

NARRATIVE: CASE EVENT DATE: 20140619
